FAERS Safety Report 8298137-2 (Version None)
Quarter: 2012Q2

REPORT INFORMATION
  Report Type: 
  Country: None (occurrence: None)
  Receive Date: 20120419
  Receipt Date: 20120410
  Transmission Date: 20120825
  Serious: Yes (Other)
  Sender: FDA-Public Use
  Company Number: FR-ROCHE-1042699

PATIENT
  Age: 56 Year
  Sex: Female
  Weight: 51 kg

DRUGS (2)
  1. AVASTIN [Suspect]
     Indication: BREAST CANCER METASTATIC
     Dates: start: 20120112, end: 20120112
  2. TAXOL [Concomitant]
     Indication: BREAST CANCER METASTATIC
     Route: 050
     Dates: start: 20120112

REACTIONS (1)
  - RETINAL HAEMORRHAGE [None]
